FAERS Safety Report 10611021 (Version 2)
Quarter: 2014Q4

REPORT INFORMATION
  Report Type: Spontaneous
  Country: SE (occurrence: SE)
  Receive Date: 20141126
  Receipt Date: 20141126
  Transmission Date: 20150529
  Serious: Yes (Other)
  Sender: FDA-Public Use
  Company Number: SE-BRISTOL-MYERS SQUIBB COMPANY-21151444

PATIENT
  Age: 50 Year
  Sex: Female

DRUGS (9)
  1. ALVEDON FORTE [Concomitant]
  2. METHOTREXATE [Concomitant]
     Active Substance: METHOTREXATE
  3. FOLACIN [Concomitant]
     Active Substance: FOLIC ACID
  4. BRICANYL [Concomitant]
     Active Substance: TERBUTALINE SULFATE
  5. MINDIAB [Concomitant]
     Active Substance: GLIPIZIDE
  6. LOSARTAN [Concomitant]
     Active Substance: LOSARTAN
  7. ORUDIS [Concomitant]
     Active Substance: KETOPROFEN
     Dosage: ORUDIS RETARD
  8. BYDUREON [Suspect]
     Active Substance: EXENATIDE
     Indication: DIABETES MELLITUS
     Route: 058
     Dates: start: 201211
  9. LEVAXIN [Concomitant]
     Active Substance: LEVOTHYROXINE SODIUM

REACTIONS (4)
  - Vomiting [Recovered/Resolved]
  - Palpitations [Recovered/Resolved]
  - Dizziness [Recovered/Resolved]
  - Heart rate increased [Unknown]

NARRATIVE: CASE EVENT DATE: 20140604
